FAERS Safety Report 23309455 (Version 1)
Quarter: 2023Q4

REPORT INFORMATION
  Report Type: Report from Study
  Country: CA (occurrence: CA)
  Receive Date: 20231218
  Receipt Date: 20231218
  Transmission Date: 20240109
  Serious: Yes (Death)
  Sender: FDA-Public Use
  Company Number: CA-BEH-2023166519

PATIENT
  Age: 66 Year
  Sex: Male
  Weight: 79 kg

DRUGS (6)
  1. HIZENTRA [Suspect]
     Active Substance: HUMAN IMMUNOGLOBULIN G
     Indication: Secondary immunodeficiency
     Dosage: UNK, QW
     Route: 065
     Dates: start: 20200130
  2. XANTI [Concomitant]
  3. LIPITOR [Concomitant]
     Active Substance: ATORVASTATIN CALCIUM
  4. ALLOPURINOL [Concomitant]
     Active Substance: ALLOPURINOL
  5. GOSERELIN [Concomitant]
     Active Substance: GOSERELIN
  6. XGEVA [Concomitant]
     Active Substance: DENOSUMAB

REACTIONS (1)
  - Death [Fatal]
